FAERS Safety Report 8395155-0 (Version None)
Quarter: 2012Q2

REPORT INFORMATION
  Report Type: 
  Country: None (occurrence: None)
  Receive Date: 20120530
  Receipt Date: 20120524
  Transmission Date: 20120825
  Serious: Yes (Death, Hospitalization)
  Sender: FDA-Public Use
  Company Number: DE-PFIZER INC-2012126625

PATIENT
  Age: 36 Year
  Sex: Male

DRUGS (2)
  1. MYCOBUTIN [Suspect]
     Indication: CROHN'S DISEASE
     Dosage: 300 MG, 1X/DAY
     Route: 048
  2. CLARITHROMYCIN [Suspect]
     Indication: CROHN'S DISEASE
     Dosage: 750 MG, 1X/DAY

REACTIONS (2)
  - COMPLETED SUICIDE [None]
  - PSYCHOTIC DISORDER [None]
